FAERS Safety Report 4552068-X (Version None)
Quarter: 2005Q1

REPORT INFORMATION
  Report Type: 
  Country: None (occurrence: None)
  Receive Date: 20050113
  Receipt Date: 20050107
  Transmission Date: 20050727
  Serious: Yes (Hospitalization)
  Sender: FDA-Public Use
  Company Number: DE-MERCK-0501DEU00104

PATIENT
  Age: 50 Year
  Sex: Male
  Weight: 58 kg

DRUGS (6)
  1. VIOXX [Suspect]
     Route: 048
     Dates: start: 19990901, end: 19991001
  2. VIOXX [Suspect]
     Route: 048
     Dates: start: 19991001, end: 20040101
  3. SULFASALAZINE [Concomitant]
     Route: 065
     Dates: start: 19890101
  4. PREDNISOLONE [Concomitant]
     Route: 065
  5. MESALAMINE [Concomitant]
     Route: 065
  6. METOPROLOL [Concomitant]
     Route: 065
     Dates: start: 19991201, end: 20010301

REACTIONS (5)
  - COLITIS ULCERATIVE [None]
  - CONGESTIVE CARDIOMYOPATHY [None]
  - CORONARY ARTERY DISEASE [None]
  - MYOCARDIAL INFARCTION [None]
  - VISUAL DISTURBANCE [None]
